FAERS Safety Report 4359288-8 (Version None)
Quarter: 2004Q2

REPORT INFORMATION
  Report Type: 
  Country: None (occurrence: None)
  Receive Date: 20040518
  Receipt Date: 20031209
  Transmission Date: 20050107
  Serious: Yes (Hospitalization, Other)
  Sender: FDA-Public Use
  Company Number: PHBS2003JP13935

PATIENT
  Age: 75 Year
  Sex: Female

DRUGS (1)
  1. ZADITEN [Suspect]
     Route: 048
     Dates: start: 20010101

REACTIONS (14)
  - ABDOMINAL CAVITY DRAINAGE [None]
  - ABDOMINAL PAIN LOWER [None]
  - ABDOMINAL TENDERNESS [None]
  - BLADDER DISORDER [None]
  - BLADDER OPERATION [None]
  - CYSTITIS [None]
  - CYSTOSCOPY [None]
  - HYPOTONIC URINARY BLADDER [None]
  - NEUROGENIC BLADDER [None]
  - PYREXIA [None]
  - SPINAL COLUMN STENOSIS [None]
  - URINARY BLADDER RUPTURE [None]
  - URINARY RETENTION [None]
  - VESICAL FISTULA [None]
